FAERS Safety Report 19928098 (Version 1)
Quarter: 2021Q4

REPORT INFORMATION
  Report Type: Spontaneous
  Country: FR (occurrence: FR)
  Receive Date: 20211007
  Receipt Date: 20211007
  Transmission Date: 20220303
  Serious: Yes (Hospitalization)
  Sender: FDA-Public Use
  Company Number: FR-BIOVITRUM-2021FR8150

PATIENT
  Age: 3 Year
  Sex: Male

DRUGS (9)
  1. KINERET [Suspect]
     Active Substance: ANAKINRA
     Indication: Still^s disease
     Dosage: KINERET 100 MG, SOLUTION INJECTABLE EN SERINGUE PREREMPLIE
     Dates: start: 20210520, end: 20210723
  2. KINERET [Suspect]
     Active Substance: ANAKINRA
     Route: 058
     Dates: start: 20210520, end: 202107
  3. ILARIS [Suspect]
     Active Substance: CANAKINUMAB
     Indication: Still^s disease
     Dosage: 2 ADMINISTRATIONS
     Route: 058
     Dates: start: 20210726, end: 20210826
  4. CITRATE DE SODIUM [Concomitant]
  5. SODIUM CHLORIDE [Concomitant]
     Active Substance: SODIUM CHLORIDE
  6. HYDROXYDE DE SODIUM [Concomitant]
  7. POLYSORBATE 80 [Concomitant]
     Active Substance: POLYSORBATE 80
  8. EDETATE DISODIQUE [Concomitant]
  9. WATER [Concomitant]
     Active Substance: WATER

REACTIONS (3)
  - Eosinophilia [Recovering/Resolving]
  - Neutrophil count increased [Unknown]
  - Neutrophil count increased [Unknown]

NARRATIVE: CASE EVENT DATE: 20210616
